FAERS Safety Report 5412683-8 (Version None)
Quarter: 2007Q3

REPORT INFORMATION
  Report Type: 
  Country: None (occurrence: None)
  Receive Date: 20070813
  Receipt Date: 20070809
  Transmission Date: 20080115
  Serious: Yes (Hospitalization)
  Sender: FDA-Public Use
  Company Number: US-BRISTOL-MYERS SQUIBB COMPANY-13873278

PATIENT
  Age: 71 Year
  Sex: Male
  Weight: 71 kg

DRUGS (18)
  1. CARBOPLATIN [Suspect]
     Indication: NON-SMALL CELL LUNG CANCER
     Route: 042
     Dates: start: 20060823
  2. PACLITAXEL [Suspect]
     Indication: NON-SMALL CELL LUNG CANCER
     Route: 042
     Dates: start: 20060823
  3. CP-751,871 [Suspect]
     Indication: NON-SMALL CELL LUNG CANCER
     Route: 042
     Dates: start: 20060823
  4. AVELOX [Concomitant]
     Indication: INFECTION
  5. BENZONATATE [Concomitant]
     Indication: COUGH
  6. COMBIVENT [Concomitant]
     Indication: COUGH
     Route: 055
     Dates: start: 20060818
  7. INTAL [Concomitant]
     Indication: COUGH
     Route: 055
     Dates: start: 20060822
  8. CODEINE SUL TAB [Concomitant]
     Indication: COUGH
     Dates: start: 20060822
  9. ZYRTEC [Concomitant]
     Indication: RHINITIS
     Dates: start: 20060818
  10. NASACORT [Concomitant]
     Indication: RHINITIS
     Route: 045
     Dates: start: 20060818
  11. ADVIL LIQUI-GELS [Concomitant]
     Indication: PAIN
     Dates: start: 20060828
  12. HYDROCODONE BITARTRATE [Concomitant]
     Indication: PAIN
     Dates: start: 20060826
  13. SENOKOT [Concomitant]
     Indication: CONSTIPATION
     Route: 048
     Dates: start: 20060822
  14. DECADRON [Concomitant]
     Dates: start: 20060823
  15. ATIVAN [Concomitant]
     Indication: NAUSEA
  16. BENADRYL [Concomitant]
     Indication: NAUSEA
  17. HALDOL [Concomitant]
     Indication: NAUSEA
  18. ZOFRAN [Concomitant]
     Indication: NAUSEA
     Dates: start: 20060822

REACTIONS (1)
  - PNEUMOTHORAX [None]
